FAERS Safety Report 23403434 (Version 5)
Quarter: 2025Q1

REPORT INFORMATION
  Report Type: Report from Study
  Country: US (occurrence: US)
  Receive Date: 20240116
  Receipt Date: 20250321
  Transmission Date: 20250409
  Serious: Yes (Other)
  Sender: TAKEDA
  Company Number: US-TAKEDA-2022TUS028015

PATIENT
  Age: 45 Year
  Sex: Female
  Weight: 99.773 kg

DRUGS (21)
  1. HUMAN IMMUNOGLOBULIN G\HYALURONIDASE RECOMBINANT HUMAN [Suspect]
     Active Substance: HUMAN IMMUNOGLOBULIN G\HYALURONIDASE (HUMAN RECOMBINANT)
     Indication: Primary immunodeficiency syndrome
  2. HUMAN IMMUNOGLOBULIN G\HYALURONIDASE RECOMBINANT HUMAN [Suspect]
     Active Substance: HUMAN IMMUNOGLOBULIN G\HYALURONIDASE (HUMAN RECOMBINANT)
     Indication: Immunodeficiency common variable
     Dosage: 60 GRAM, Q4WEEKS
     Dates: start: 20200126
  3. DIPHENHYDRAMINE [Concomitant]
     Active Substance: DIPHENHYDRAMINE
  4. FLURBIPROFEN [Concomitant]
     Active Substance: FLURBIPROFEN
  5. METOPROLOL SUCCINATE [Concomitant]
     Active Substance: METOPROLOL SUCCINATE
  6. EPINEPHRINE [Concomitant]
     Active Substance: EPINEPHRINE
  7. RIZATRIPTAN [Concomitant]
     Active Substance: RIZATRIPTAN
  8. IBUPROFEN [Concomitant]
     Active Substance: IBUPROFEN
  9. EMGALITY [Concomitant]
     Active Substance: GALCANEZUMAB-GNLM
  10. ACETAMINOPHEN [Concomitant]
     Active Substance: ACETAMINOPHEN
  11. CETIRIZINE HYDROCHLORIDE [Concomitant]
     Active Substance: CETIRIZINE HYDROCHLORIDE
  12. LORATADINE [Concomitant]
     Active Substance: LORATADINE
  13. CYCLOBENZAPRINE HYDROCHLORIDE [Concomitant]
     Active Substance: CYCLOBENZAPRINE HYDROCHLORIDE
  14. TRAZODONE HCL [Concomitant]
     Active Substance: TRAZODONE HYDROCHLORIDE
  15. SODIUM CHLORIDE [Concomitant]
     Active Substance: SODIUM CHLORIDE
  16. SERTRALINE HYDROCHLORIDE [Concomitant]
     Active Substance: SERTRALINE HYDROCHLORIDE
  17. IMITREX [Concomitant]
     Active Substance: SUMATRIPTAN SUCCINATE
  18. LIDOCAINE [Concomitant]
     Active Substance: LIDOCAINE
  19. BANOPHEN [Concomitant]
     Active Substance: DIPHENHYDRAMINE HYDROCHLORIDE
  20. KLONOPIN [Concomitant]
     Active Substance: CLONAZEPAM
  21. DIPHENHYDRAMINE HYDROCHLORIDE [Concomitant]
     Active Substance: DIPHENHYDRAMINE HYDROCHLORIDE

REACTIONS (13)
  - Pneumonia [Not Recovered/Not Resolved]
  - Allergy to immunoglobulin therapy [Not Recovered/Not Resolved]
  - Product dose omission issue [Unknown]
  - Infusion site pruritus [Not Recovered/Not Resolved]
  - Infusion site erythema [Not Recovered/Not Resolved]
  - Infusion site pain [Not Recovered/Not Resolved]
  - Viral infection [Unknown]
  - COVID-19 [Unknown]
  - Vestibular migraine [Unknown]
  - Sinusitis [Unknown]
  - Respiratory syncytial virus infection [Not Recovered/Not Resolved]
  - Ear infection [Not Recovered/Not Resolved]
  - Migraine [Unknown]

NARRATIVE: CASE EVENT DATE: 20220904
